FAERS Safety Report 25826668 (Version 1)
Quarter: 2025Q3

REPORT INFORMATION
  Report Type: Spontaneous
  Country: EU (occurrence: EU)
  Receive Date: 20250920
  Receipt Date: 20250920
  Transmission Date: 20251021
  Serious: Yes (Hospitalization, Other)
  Sender: BRISTOL-MYERS SQUIBB COMPANY
  Company Number: EU-BRISTOL-MYERS SQUIBB COMPANY-2025-127240

PATIENT
  Age: 73 Year
  Sex: Male

DRUGS (3)
  1. NELVUTAMIG [Suspect]
     Active Substance: NELVUTAMIG
     Indication: Clear cell renal cell carcinoma
  2. NIVOLUMAB [Suspect]
     Active Substance: NIVOLUMAB
     Indication: Clear cell renal cell carcinoma
     Dates: start: 202311, end: 202506
  3. INSULIN NOS [Concomitant]
     Active Substance: INSULIN NOS
     Indication: Type 2 diabetes mellitus

REACTIONS (6)
  - Anaemia [Unknown]
  - Hepatotoxicity [Recovering/Resolving]
  - Malignant neoplasm progression [Unknown]
  - Dermatitis bullous [Not Recovered/Not Resolved]
  - Colorectal cancer [Unknown]
  - Rash papular [Not Recovered/Not Resolved]

NARRATIVE: CASE EVENT DATE: 20250101
